FAERS Safety Report 9748145 (Version 2)
Quarter: 2014Q1

REPORT INFORMATION
  Report Type: Spontaneous
  Country: BE (occurrence: None)
  Receive Date: 20131206
  Receipt Date: 20140205
  Transmission Date: 20141002
  Serious: Yes (Death)
  Sender: FDA-Public Use
  Company Number: ADR-2013-02207

PATIENT
  Sex: 0

DRUGS (1)
  1. LIORESAL INTRATHECAL (BACLOFEN INTRATHECAL)500MCG/ML [Suspect]
     Indication: MUSCLE SPASTICITY

REACTIONS (1)
  - Death [None]
